FAERS Safety Report 6191407-3 (Version None)
Quarter: 2009Q2

REPORT INFORMATION
  Report Type: 
  Country: None (occurrence: None)
  Receive Date: 20090515
  Receipt Date: 20070405
  Transmission Date: 20091009
  Serious: Yes (Hospitalization)
  Sender: FDA-Public Use
  Company Number: US-ASTRAZENECA-2006UW10995

PATIENT
  Age: 260 Month
  Sex: Female
  Weight: 161 kg

DRUGS (18)
  1. SEROQUEL [Suspect]
     Indication: INSOMNIA
     Dosage: 100MG- 400MG
     Route: 048
     Dates: start: 20031211
  2. ZYPREXA [Suspect]
     Route: 065
  3. STELAZINE [Concomitant]
     Route: 065
  4. SYMBYAX [Concomitant]
     Route: 048
  5. SEPTRA [Concomitant]
     Route: 048
  6. VICODIN [Concomitant]
     Route: 048
  7. IBUPROFEN [Concomitant]
     Route: 048
  8. PERCOCET [Concomitant]
     Route: 048
  9. GLUCOTROL XL [Concomitant]
     Route: 048
  10. LANTUS [Concomitant]
     Dosage: 25-55 IU
     Route: 065
  11. METFORMIN HCL [Concomitant]
     Route: 048
  12. ZYVOX [Concomitant]
     Route: 048
  13. FLUCONAZOLE [Concomitant]
     Route: 048
  14. METHADONE HCL [Concomitant]
     Route: 048
  15. NAPROXEN [Concomitant]
     Route: 048
  16. ZESTRIL [Concomitant]
     Route: 048
  17. FLEXERIL [Concomitant]
     Route: 048
  18. TYLENOL [Concomitant]
     Route: 048

REACTIONS (11)
  - ABSCESS [None]
  - CELLULITIS [None]
  - DIABETES MELLITUS [None]
  - FEELING ABNORMAL [None]
  - INSOMNIA [None]
  - MUSCULOSKELETAL PAIN [None]
  - OVERDOSE [None]
  - STAPHYLOCOCCAL INFECTION [None]
  - STRESS [None]
  - ULCER [None]
  - URINARY TRACT INFECTION [None]
